FAERS Safety Report 17665222 (Version 4)
Quarter: 2020Q2

REPORT INFORMATION
  Report Type: Spontaneous
  Country: PT (occurrence: PT)
  Receive Date: 20200414
  Receipt Date: 20200623
  Transmission Date: 20200713
  Serious: Yes (Hospitalization, Other)
  Sender: FDA-Public Use
  Company Number: NVSC2020PT091715

PATIENT
  Age: 82 Year
  Sex: Female

DRUGS (9)
  1. FENOFIBRATE. [Concomitant]
     Active Substance: FENOFIBRATE
     Indication: DYSLIPIDAEMIA
     Dosage: 25 MG, QD
     Route: 065
  2. AMPICILLIN [Suspect]
     Active Substance: AMPICILLIN
     Indication: MENINGITIS BACTERIAL
     Dosage: 1 G, Q6H
     Route: 065
  3. AMPICILLIN [Suspect]
     Active Substance: AMPICILLIN
     Dosage: 1 G, Q4H
     Route: 065
  4. LOSARTAN. [Concomitant]
     Active Substance: LOSARTAN
     Indication: HYPERTENSION
     Dosage: 50 MG, QD
     Route: 065
  5. CEFTRIAXONE. [Suspect]
     Active Substance: CEFTRIAXONE
     Indication: MENINGITIS BACTERIAL
     Dosage: 2 G, Q2H
     Route: 065
  6. METFORMIN [Concomitant]
     Active Substance: METFORMIN HYDROCHLORIDE
     Indication: TYPE 2 DIABETES MELLITUS
     Dosage: 1000 MG, BID
     Route: 065
  7. CEFTRIAXONE. [Suspect]
     Active Substance: CEFTRIAXONE
     Dosage: 2 G, Q12H
     Route: 065
  8. BISOPROLOL [Concomitant]
     Active Substance: BISOPROLOL
     Indication: CARDIAC FAILURE
     Dosage: 2.5 MG, QD
     Route: 065
  9. VILDAGLIPTIN [Concomitant]
     Active Substance: VILDAGLIPTIN
     Indication: TYPE 2 DIABETES MELLITUS
     Dosage: 50 MG, BID
     Route: 065

REACTIONS (15)
  - Skin necrosis [Recovered/Resolved]
  - Cutaneous vasculitis [Recovered/Resolved]
  - Vasculitis [Unknown]
  - Dermatitis bullous [Recovered/Resolved]
  - Normochromic normocytic anaemia [Unknown]
  - Drug hypersensitivity [Recovered/Resolved]
  - Necrosis [Unknown]
  - Hypotension [Unknown]
  - Pyrexia [Recovering/Resolving]
  - Hypersensitivity vasculitis [Recovered/Resolved]
  - Purpura [Recovered/Resolved]
  - Abnormal behaviour [Unknown]
  - Oedema [Unknown]
  - Confusional state [Recovering/Resolving]
  - Hyporesponsive to stimuli [Unknown]
